FAERS Safety Report 20075894 (Version 14)
Quarter: 2022Q3

REPORT INFORMATION
  Report Type: Report from Study
  Country: US (occurrence: None)
  Receive Date: 20211116
  Receipt Date: 20220701
  Transmission Date: 20221027
  Serious: Yes (Hospitalization)
  Sender: FDA-Public Use
  Company Number: US-ROCHE-2919125

PATIENT
  Age: 65 Year
  Sex: Female
  Weight: 71.5 kg

DRUGS (78)
  1. TIRAGOLUMAB [Suspect]
     Active Substance: TIRAGOLUMAB
     Indication: Small cell lung cancer extensive stage
     Dosage: START DATE OF MOST RECENT DOSE OF STUDY DRUG PRIOR TO AE ON 23/MAR/2021?07/JUL/2021 RECEIVED MOST RE
     Route: 042
     Dates: start: 20210126
  2. ATEZOLIZUMAB [Suspect]
     Active Substance: ATEZOLIZUMAB
     Indication: Small cell lung cancer extensive stage
     Dosage: START DATE OF MOST RECENT DOSE OF STUDY DRUG PRIOR TO AE ON 23/MAR/2021?07/JUL/2021 RECEIVED MOST RE
     Route: 041
     Dates: start: 20210126
  3. ETOPOSIDE [Suspect]
     Active Substance: ETOPOSIDE
     Indication: Small cell lung cancer extensive stage
     Dosage: START DATE OF MOST RECENT DOSE OF STUDY DRUG PRIOR TO AE ON 23/MAR/2021?16/APR/2021 RECEIVED MOST RE
     Route: 042
     Dates: start: 20210126
  4. CARBOPLATIN [Suspect]
     Active Substance: CARBOPLATIN
     Indication: Small cell lung cancer extensive stage
     Dosage: START DATE OF MOST RECENT DOSE OF STUDY DRUG PRIOR TO AE ON 23/MAR/2021?14/APR/2021 RECEIVED MOST RE
     Route: 042
     Dates: start: 20210126
  5. SUMATRIPTAN SUCCINATE [Concomitant]
     Active Substance: SUMATRIPTAN SUCCINATE
     Indication: Migraine
     Dosage: ONGOING YES
     Route: 048
     Dates: start: 1991
  6. METFORMIN HYDROCHLORIDE [Concomitant]
     Active Substance: METFORMIN HYDROCHLORIDE
     Indication: Type 2 diabetes mellitus
     Route: 048
     Dates: start: 2016
  7. DILTIAZEM HYDROCHLORIDE [Concomitant]
     Active Substance: DILTIAZEM HYDROCHLORIDE
     Indication: Chest pain
     Dosage: ONGOING YES
     Route: 048
     Dates: start: 202010
  8. ONDANSETRON HCL [Concomitant]
     Active Substance: ONDANSETRON HYDROCHLORIDE
     Indication: Prophylaxis of nausea and vomiting
     Dosage: ONGOING YES?GIVEN FOR PROPHYLAXIS YES
     Route: 048
     Dates: start: 202010
  9. ONDANSETRON HCL [Concomitant]
     Active Substance: ONDANSETRON HYDROCHLORIDE
     Route: 048
     Dates: start: 20210126
  10. PROCHLORPERAZINE MALEATE [Concomitant]
     Active Substance: PROCHLORPERAZINE MALEATE
     Indication: Prophylaxis of nausea and vomiting
     Route: 048
     Dates: start: 20210129
  11. IBUPROFEN [Concomitant]
     Active Substance: IBUPROFEN
     Indication: Osteoarthritis
     Route: 048
     Dates: start: 20210119
  12. IBUPROFEN [Concomitant]
     Active Substance: IBUPROFEN
     Indication: Arthralgia
  13. ZOLEDRONIC ACID [Concomitant]
     Active Substance: ZOLEDRONIC ACID
     Indication: Metastases to bone
     Route: 042
     Dates: start: 20210127
  14. CIPROFLOXACIN HYDROCHLORIDE [Concomitant]
     Active Substance: CIPROFLOXACIN HYDROCHLORIDE
     Route: 048
     Dates: start: 20210528, end: 20210531
  15. CIPROFLOXACIN HYDROCHLORIDE [Concomitant]
     Active Substance: CIPROFLOXACIN HYDROCHLORIDE
     Route: 048
     Dates: start: 20210217, end: 20210222
  16. DIPHENHYDRAMINE [Concomitant]
     Active Substance: DIPHENHYDRAMINE
     Indication: Rash
     Route: 048
     Dates: start: 20210223, end: 20210309
  17. FILGRASTIM [Concomitant]
     Active Substance: FILGRASTIM
     Indication: Neutropenia
     Route: 058
     Dates: start: 20210310
  18. TRIAMCINOLONE ACETONIDE [Concomitant]
     Active Substance: TRIAMCINOLONE ACETONIDE
     Dates: start: 20210305
  19. ACETAMINOPHEN [Concomitant]
     Active Substance: ACETAMINOPHEN
     Indication: Migraine
     Route: 001
     Dates: start: 2010
  20. ACETAMINOPHEN [Concomitant]
     Active Substance: ACETAMINOPHEN
     Indication: Pyrexia
     Route: 048
     Dates: start: 20160610, end: 20211007
  21. ACETAMINOPHEN [Concomitant]
     Active Substance: ACETAMINOPHEN
     Route: 048
     Dates: start: 20211006, end: 20211007
  22. ACETAMINOPHEN [Concomitant]
     Active Substance: ACETAMINOPHEN
     Route: 048
     Dates: start: 20220327, end: 20220327
  23. ASPIRIN [Concomitant]
     Active Substance: ASPIRIN
     Indication: Migraine
     Route: 048
     Dates: start: 2010
  24. CAFFEINE [Concomitant]
     Active Substance: CAFFEINE
     Indication: Migraine
     Route: 048
     Dates: start: 2010
  25. MODERNA COVID-19 VACCINE [Concomitant]
     Active Substance: ELASOMERAN
     Route: 030
     Dates: start: 20210424, end: 20210424
  26. MODERNA COVID-19 VACCINE [Concomitant]
     Active Substance: ELASOMERAN
     Indication: COVID-19 prophylaxis
     Route: 030
     Dates: start: 20210425, end: 20210425
  27. NICOTINE POLACRILEX [Concomitant]
     Active Substance: NICOTINE
     Route: 048
     Dates: start: 2016
  28. NICOTINE POLACRILEX [Concomitant]
     Active Substance: NICOTINE
     Dosage: ONGOING YES
     Route: 048
     Dates: start: 2016
  29. FLUTICASONE FUROATE\VILANTEROL TRIFENATATE [Concomitant]
     Active Substance: FLUTICASONE FUROATE\VILANTEROL TRIFENATATE
     Indication: Chronic obstructive pulmonary disease
     Dosage: 200-25 MG
     Route: 055
     Dates: start: 20210507
  30. FLUTICASONE FUROATE\VILANTEROL TRIFENATATE [Concomitant]
     Active Substance: FLUTICASONE FUROATE\VILANTEROL TRIFENATATE
     Dosage: 1 INHALATION?ONGOING YES
     Route: 055
     Dates: start: 20210507
  31. DULOXETINE HYDROCHLORIDE [Concomitant]
     Active Substance: DULOXETINE HYDROCHLORIDE
     Indication: Anxiety
     Route: 048
     Dates: start: 201910
  32. UMECLIDINIUM BROMIDE [Concomitant]
     Active Substance: UMECLIDINIUM BROMIDE
     Indication: Chronic obstructive pulmonary disease
     Route: 055
     Dates: start: 2020
  33. TEMAZEPAM [Concomitant]
     Active Substance: TEMAZEPAM
     Indication: Anxiety
     Route: 048
     Dates: start: 202102
  34. CIPROFLOXACIN HYDROCHLORIDE [Concomitant]
     Active Substance: CIPROFLOXACIN HYDROCHLORIDE
  35. BETAMETHASONE\CLOTRIMAZOLE [Concomitant]
     Active Substance: BETAMETHASONE\CLOTRIMAZOLE
     Indication: Rash
     Dosage: CLOTRIMAZOLE / BETAMETHASONE : 1% / 0.05 %
     Route: 061
     Dates: start: 20210723
  36. ASPIRIN [Concomitant]
     Active Substance: ASPIRIN
     Indication: Prophylaxis
     Route: 048
     Dates: start: 20210719
  37. INFLIXIMAB [Concomitant]
     Active Substance: INFLIXIMAB
     Indication: Rash
     Dosage: ONGOING YES
     Route: 042
     Dates: start: 20210812
  38. HYDROXYZINE [Concomitant]
     Active Substance: HYDROXYZINE HYDROCHLORIDE
     Indication: Rash
     Route: 048
     Dates: start: 20210817
  39. HYDROXYZINE [Concomitant]
     Active Substance: HYDROXYZINE HYDROCHLORIDE
     Indication: Pruritus
  40. CEPHALEXIN [Concomitant]
     Active Substance: CEPHALEXIN
     Indication: Animal scratch
     Route: 048
     Dates: start: 20210817, end: 20210823
  41. INSULIN NOS [Concomitant]
     Active Substance: INSULIN NOS
     Indication: Type 2 diabetes mellitus
     Dosage: 4-8 UNNITS
     Route: 042
     Dates: start: 20210825, end: 20210825
  42. INSULIN NOS [Concomitant]
     Active Substance: INSULIN NOS
     Route: 058
     Dates: start: 20211006, end: 20211008
  43. PREDNISOLONE [Concomitant]
     Active Substance: PREDNISOLONE
     Indication: Rash
     Route: 048
     Dates: start: 20210909
  44. MORPHINE [Concomitant]
     Active Substance: MORPHINE
     Indication: Abdominal pain upper
     Dosage: 2 MG/ ML Q4H?4MG/ML Q4H
     Route: 042
     Dates: start: 20211006, end: 20211008
  45. MORPHINE [Concomitant]
     Active Substance: MORPHINE
     Indication: Arthralgia
     Route: 042
     Dates: start: 20211006, end: 20211008
  46. BISACODYL [Concomitant]
     Active Substance: BISACODYL
     Indication: Constipation
     Route: 054
     Dates: start: 20210825, end: 20210828
  47. ENOXAPARIN SODIUM [Concomitant]
     Active Substance: ENOXAPARIN SODIUM
     Indication: Prophylaxis
     Route: 030
     Dates: start: 20210825, end: 20210828
  48. ASCORBIC ACID [Concomitant]
     Active Substance: ASCORBIC ACID
     Route: 048
     Dates: start: 20211006, end: 20211008
  49. ASCORBIC ACID [Concomitant]
     Active Substance: ASCORBIC ACID
     Route: 048
     Dates: start: 20220222, end: 20220224
  50. MAGNESIUM [Concomitant]
     Active Substance: MAGNESIUM
     Route: 048
     Dates: start: 20210930
  51. VITAMIN C [Concomitant]
     Active Substance: ASCORBIC ACID
     Route: 048
     Dates: start: 20210930
  52. INSULIN ASPART [Concomitant]
     Active Substance: INSULIN ASPART
     Indication: Type 2 diabetes mellitus
     Route: 030
     Dates: start: 20211006, end: 20211008
  53. INSULIN ASPART [Concomitant]
     Active Substance: INSULIN ASPART
     Dosage: (2-8 UNITS)
     Route: 030
     Dates: start: 20220417, end: 20220419
  54. FUROSEMIDE [Concomitant]
     Active Substance: FUROSEMIDE
     Indication: Oedema peripheral
     Route: 048
     Dates: start: 20211111
  55. POTASSIUM CHLORIDE [Concomitant]
     Active Substance: POTASSIUM CHLORIDE
     Route: 048
     Dates: start: 20211111
  56. CANNABIDIOL [Concomitant]
     Active Substance: CANNABIDIOL
     Dosage: LIQUID
     Route: 048
     Dates: start: 20211125
  57. HEPARIN [Concomitant]
     Active Substance: HEPARIN SODIUM
     Indication: COVID-19
     Dosage: DOSE: 1 OTHER
     Route: 058
     Dates: start: 20220114, end: 20220118
  58. REMDESIVIR [Concomitant]
     Active Substance: REMDESIVIR
     Indication: COVID-19
     Dosage: DOSE: 1 OTHER
     Route: 042
     Dates: start: 20220115, end: 20220118
  59. REMDESIVIR [Concomitant]
     Active Substance: REMDESIVIR
     Dosage: DOSE: 1 OTHER
     Route: 042
     Dates: start: 20220115, end: 20220115
  60. GUAIFENESIN [Concomitant]
     Active Substance: GUAIFENESIN
     Indication: COVID-19
     Route: 048
     Dates: start: 20220115, end: 20220118
  61. CHOLECALCIFEROL [Concomitant]
     Active Substance: CHOLECALCIFEROL
     Indication: COVID-19
     Dosage: DOSE: 25 UG
     Route: 048
     Dates: start: 20220115, end: 20220118
  62. CEFTRIAXONE [Concomitant]
     Active Substance: CEFTRIAXONE
     Indication: COVID-19
     Dosage: DOSE: 1 OTHER
     Route: 042
     Dates: start: 20220115, end: 20220118
  63. AZITHROMYCIN [Concomitant]
     Active Substance: AZITHROMYCIN
     Indication: COVID-19
     Dosage: DOSE: 1 OTHER
     Route: 042
     Dates: start: 20220115, end: 20220118
  64. PYRIDOXINE HYDROCHLORIDE [Concomitant]
     Active Substance: PYRIDOXINE HYDROCHLORIDE
     Indication: Peripheral sensory neuropathy
     Dosage: ONGOING YES
     Route: 048
     Dates: start: 20220211
  65. GABAPENTIN [Concomitant]
     Active Substance: GABAPENTIN
     Indication: Peripheral sensory neuropathy
     Dosage: ONGOING YES
     Route: 048
     Dates: start: 20220303
  66. DOXYCYCLINE HYCLATE [Concomitant]
     Active Substance: DOXYCYCLINE HYCLATE
     Indication: Infection prophylaxis
     Route: 048
     Dates: start: 20220223, end: 20220224
  67. FORMOTEROL FUMARATE [Concomitant]
     Active Substance: FORMOTEROL FUMARATE
     Indication: Dyspnoea
     Route: 055
     Dates: start: 20210813
  68. CICLESONIDE [Concomitant]
     Active Substance: CICLESONIDE
     Indication: Dyspnoea
     Route: 055
     Dates: start: 20210825
  69. IPRATROPIUM BROMIDE [Concomitant]
     Active Substance: IPRATROPIUM BROMIDE
     Indication: Dyspnoea
     Route: 055
     Dates: start: 20210825, end: 20210828
  70. IPRATROPIUM BROMIDE [Concomitant]
     Active Substance: IPRATROPIUM BROMIDE
     Route: 055
     Dates: start: 20211006, end: 20211008
  71. IPRATROPIUM BROMIDE [Concomitant]
     Active Substance: IPRATROPIUM BROMIDE
     Route: 055
     Dates: start: 20210825, end: 20210828
  72. ACETAMINOPHEN\HYDROCODONE [Concomitant]
     Active Substance: ACETAMINOPHEN\HYDROCODONE
     Indication: Arthralgia
     Dosage: 1 TABLET
     Route: 048
     Dates: start: 20211203
  73. ACETAMINOPHEN\HYDROCODONE [Concomitant]
     Active Substance: ACETAMINOPHEN\HYDROCODONE
     Indication: Abdominal pain upper
     Dosage: 1 TABLET?5MG/ 325MG
     Route: 048
     Dates: start: 20211006, end: 20211008
  74. ACETAMINOPHEN\HYDROCODONE [Concomitant]
     Active Substance: ACETAMINOPHEN\HYDROCODONE
     Dosage: 1 TABLET?7.5MG/ 325MG
     Route: 048
     Dates: start: 20211006, end: 20211008
  75. IPRATROPIUM [Concomitant]
     Active Substance: IPRATROPIUM
     Indication: Dyspnoea
     Dosage: DOSE: 1 OTHER
     Route: 055
     Dates: start: 20220116, end: 20220118
  76. IPRATROPIUM [Concomitant]
     Active Substance: IPRATROPIUM
     Route: 055
     Dates: start: 20220418, end: 20220419
  77. INSULIN ASPART [Concomitant]
     Active Substance: INSULIN ASPART
     Indication: Type 2 diabetes mellitus
     Dosage: 4 -8 UNITS
     Route: 042
     Dates: start: 20210825, end: 20210825
  78. INSULIN ASPART [Concomitant]
     Active Substance: INSULIN ASPART
     Indication: Type 2 diabetes mellitus
     Dosage: 2-8 UNITS
     Route: 058
     Dates: start: 20220222, end: 20220224

REACTIONS (1)
  - Chronic obstructive pulmonary disease [Not Recovered/Not Resolved]

NARRATIVE: CASE EVENT DATE: 20210719
